FAERS Safety Report 24460512 (Version 2)
Quarter: 2024Q4

REPORT INFORMATION
  Report Type: Spontaneous
  Country: US (occurrence: US)
  Receive Date: 20241018
  Receipt Date: 20241224
  Transmission Date: 20250115
  Serious: No
  Sender: TAKEDA
  Company Number: US-TAKEDA-2024TUS103202

PATIENT
  Sex: Female
  Weight: 52 kg

DRUGS (8)
  1. GAMMAGARD LIQUID [Suspect]
     Active Substance: HUMAN IMMUNOGLOBULIN G
     Indication: Myasthenia gravis
     Dosage: 60 MILLIGRAM, Q3WEEKS
     Dates: start: 2016
  2. IBUPROFEN [Concomitant]
     Active Substance: IBUPROFEN
     Indication: Pain
     Dosage: UNK
  3. LEVOTHYROXINE [Concomitant]
     Active Substance: LEVOTHYROXINE
     Dosage: UNK
  4. PANTOPRAZOLE [Concomitant]
     Active Substance: PANTOPRAZOLE
     Dosage: UNK
  5. LIDOCAINE [Concomitant]
     Active Substance: LIDOCAINE
     Indication: Back pain
     Dosage: UNK
  6. SYSTANE ULTRA [Concomitant]
     Active Substance: POLYETHYLENE GLYCOL 400\PROPYLENE GLYCOL
     Dosage: UNK
  7. ASTEPRO [Concomitant]
     Active Substance: AZELASTINE HYDROCHLORIDE
     Dosage: UNK
  8. FLONASE [Concomitant]
     Active Substance: FLUTICASONE PROPIONATE
     Dosage: UNK

REACTIONS (6)
  - Wrong technique in product usage process [Unknown]
  - Vein rupture [Unknown]
  - Incorrect dose administered [Unknown]
  - Device infusion issue [Unknown]
  - Weight decreased [Unknown]
  - Device use issue [Unknown]
